FAERS Safety Report 19911482 (Version 1)
Quarter: 2021Q4

REPORT INFORMATION
  Report Type: Spontaneous
  Country: US (occurrence: US)
  Receive Date: 20211001
  Receipt Date: 20211001
  Transmission Date: 20220303
  Serious: Yes (Other)
  Sender: FDA-Public Use
  Company Number: None

PATIENT
  Age: 58 Year
  Sex: Female

DRUGS (1)
  1. LUTATHERA [Suspect]
     Active Substance: LUTETIUM OXODOTREOTIDE LU-177
     Indication: Gastroenteropancreatic neuroendocrine tumour disease
     Dosage: ?          OTHER FREQUENCY:ONCE;OTHER ROUTE:IV
     Dates: start: 20210429, end: 20210429

REACTIONS (10)
  - Nausea [None]
  - Vomiting [None]
  - Depressed level of consciousness [None]
  - Pneumonia aspiration [None]
  - Sepsis [None]
  - Multiple organ dysfunction syndrome [None]
  - Shock [None]
  - Liver function test increased [None]
  - Disease complication [None]
  - Hepatic necrosis [None]

NARRATIVE: CASE EVENT DATE: 20210429
